FAERS Safety Report 16211878 (Version 7)
Quarter: 2019Q3

REPORT INFORMATION
  Report Type: Report from Study
  Country: KR (occurrence: KR)
  Receive Date: 20190418
  Receipt Date: 20190923
  Transmission Date: 20191004
  Serious: Yes (Hospitalization)
  Sender: FDA-Public Use
  Company Number: KR-ROCHE-2304081

PATIENT
  Age: 62 Year
  Sex: Male
  Weight: 64 kg

DRUGS (20)
  1. URSA [Concomitant]
     Active Substance: URSODIOL
     Indication: ALANINE AMINOTRANSFERASE INCREASED
  2. SOLONDO [Concomitant]
     Active Substance: PREDNISOLONE
     Indication: COLITIS
     Route: 048
     Dates: start: 20190306
  3. TARGIN [Concomitant]
     Active Substance: NALOXONE HYDROCHLORIDE\OXYCODONE HYDROCHLORIDE
     Indication: TUMOUR PAIN
     Dosage: TARGIN CR 40/20
     Route: 048
     Dates: start: 20190226
  4. TARGIN [Concomitant]
     Active Substance: NALOXONE HYDROCHLORIDE\OXYCODONE HYDROCHLORIDE
     Dosage: TARGIN CR 20/10
     Route: 048
     Dates: start: 20190226
  5. IRCODON [Concomitant]
     Active Substance: OXYCODONE HYDROCHLORIDE
     Indication: TUMOUR PAIN
     Route: 048
     Dates: start: 20181126, end: 20190411
  6. NAXEN-F [Concomitant]
     Indication: TUMOUR PAIN
     Dosage: DOSE:0.5
     Route: 048
     Dates: start: 20190306, end: 20190411
  7. SODIUM BICARBONATE. [Concomitant]
     Active Substance: SODIUM BICARBONATE
     Indication: DRY MOUTH
     Route: 048
     Dates: start: 20190411
  8. TARGIN [Concomitant]
     Active Substance: NALOXONE HYDROCHLORIDE\OXYCODONE HYDROCHLORIDE
     Dosage: TARGIN CR 10/5
     Route: 048
     Dates: start: 20190306
  9. LOPERAMIDE [Concomitant]
     Active Substance: LOPERAMIDE
     Indication: COLITIS
     Route: 048
     Dates: start: 20190228, end: 20190411
  10. CAROL-F [Concomitant]
     Indication: TUMOUR PAIN
     Route: 048
     Dates: start: 20190124, end: 20190411
  11. FREAMINE III NOS [Concomitant]
     Active Substance: AMINO ACIDS
     Indication: COLITIS
     Route: 042
     Dates: start: 20190228
  12. PLACEBO [Suspect]
     Active Substance: UNSPECIFIED INGREDIENT
     Indication: NON-SMALL CELL LUNG CANCER
     Dosage: ON 15/MAR/2019, AT 13:30 HE RECEIVED MOST RECENT DOSE OF BLINDED MTIG7192A PRIOR TO SERIOUS ADVERSE
     Route: 042
     Dates: start: 20180928
  13. LIDOTOP [Concomitant]
     Indication: TUMOUR PAIN
     Dosage: DOSE: 1
     Route: 062
     Dates: start: 20190129
  14. SOLONDO [Concomitant]
     Active Substance: PREDNISOLONE
     Route: 048
     Dates: start: 20190316, end: 20190323
  15. PENIRAMIN [Concomitant]
     Route: 042
     Dates: start: 20181218
  16. TANTUM [BENZYDAMINE HYDROCHLORIDE] [Concomitant]
     Indication: DRY MOUTH
     Route: 048
     Dates: start: 20190411
  17. RHINATHIOL [CARBOCISTEINE] [Concomitant]
     Indication: PRODUCTIVE COUGH
     Route: 048
     Dates: start: 20190412
  18. ATEZOLIZUMAB. [Suspect]
     Active Substance: ATEZOLIZUMAB
     Indication: NON-SMALL CELL LUNG CANCER
     Dosage: ON 15/MAR/2019, AT 12:30 HE RECEIVED MOST RECENT DOSE OF ATEZOLIZUMAB (1200 MG) PRIOR TO SERIOUS ADV
     Route: 041
     Dates: start: 20180928
  19. XANAX [Concomitant]
     Active Substance: ALPRAZOLAM
     Indication: ANXIETY
     Route: 048
     Dates: start: 20190131, end: 20190411
  20. URSA [Concomitant]
     Active Substance: URSODIOL
     Indication: ASPARTATE AMINOTRANSFERASE INCREASED
     Route: 048
     Dates: start: 20190306, end: 20190315

REACTIONS (1)
  - Acute kidney injury [Recovered/Resolved]

NARRATIVE: CASE EVENT DATE: 20190411
